FAERS Safety Report 4294817-4 (Version None)
Quarter: 2004Q1

REPORT INFORMATION
  Report Type: 
  Country: None (occurrence: None)
  Receive Date: 20040216
  Receipt Date: 20030109
  Transmission Date: 20041129
  Serious: Yes (Life-Threatening, Hospitalization)
  Sender: FDA-Public Use
  Company Number: US-GLAXOSMITHKLINE-A0391720A

PATIENT
  Age: 2 Year
  Sex: Male

DRUGS (1)
  1. LAMICTAL [Suspect]
     Dosage: 2.5MG UNKNOWN
     Route: 048
     Dates: start: 20021226, end: 20030107

REACTIONS (2)
  - DERMATITIS EXFOLIATIVE [None]
  - STEVENS-JOHNSON SYNDROME [None]
